FAERS Safety Report 16796511 (Version 4)
Quarter: 2020Q2

REPORT INFORMATION
  Report Type: Report from Study
  Country: US (occurrence: US)
  Receive Date: 20190911
  Receipt Date: 20200521
  Transmission Date: 20200713
  Serious: No
  Sender: FDA-Public Use
  Company Number: US-SA-2019SA251831

PATIENT
  Age: 44 Year
  Sex: Female

DRUGS (2)
  1. DUPILUMAB [Suspect]
     Active Substance: DUPILUMAB
     Dosage: 300 MG, QOW
     Route: 058
     Dates: start: 201907
  2. DUPILUMAB [Suspect]
     Active Substance: DUPILUMAB
     Indication: ASTHMA
     Dosage: 600 MG, 1X
     Route: 058
     Dates: start: 20190620, end: 20190620

REACTIONS (5)
  - Unevaluable event [Unknown]
  - Dyspnoea [Unknown]
  - Cold sweat [Unknown]
  - Catheterisation cardiac [Unknown]
  - Hysterectomy [Unknown]

NARRATIVE: CASE EVENT DATE: 20190901
